FAERS Safety Report 20770467 (Version 1)
Quarter: 2022Q2

REPORT INFORMATION
  Report Type: Spontaneous
  Country: US (occurrence: None)
  Receive Date: 20220425
  Receipt Date: 20220425
  Transmission Date: 20220721
  Serious: No
  Sender: FDA-Public Use
  Company Number: None

PATIENT
  Age: 48 Year
  Sex: Female

DRUGS (1)
  1. RIFAMPIN [Suspect]
     Active Substance: RIFAMPIN
     Dosage: FREQUENCY : DAILY?
     Route: 048
     Dates: start: 20220418

REACTIONS (3)
  - Vomiting [None]
  - Diarrhoea [None]
  - Reaction to excipient [None]

NARRATIVE: CASE EVENT DATE: 20220418
